FAERS Safety Report 7829265-0 (Version None)
Quarter: 2011Q4

REPORT INFORMATION
  Report Type: 
  Country: None (occurrence: None)
  Receive Date: 20111020
  Receipt Date: 20111014
  Transmission Date: 20120403
  Serious: Yes (Other)
  Sender: FDA-Public Use
  Company Number: US-ALLERGAN-1112657US

PATIENT
  Age: 65 Year
  Sex: Female

DRUGS (4)
  1. RESTASIS [Suspect]
     Indication: DRY EYE
     Dosage: 2 GTT, BID
     Route: 047
     Dates: end: 20110917
  2. NEURONTIN [Concomitant]
  3. AMBIEN [Concomitant]
  4. JOHNSON AND JOHNSON BABY SHAMPOO [Concomitant]
     Indication: THERAPEUTIC SKIN CARE TOPICAL

REACTIONS (1)
  - CONJUNCTIVAL NEOPLASM [None]
